FAERS Safety Report 17152903 (Version 4)
Quarter: 2020Q3

REPORT INFORMATION
  Report Type: Spontaneous
  Country: JP (occurrence: JP)
  Receive Date: 20191213
  Receipt Date: 20200722
  Transmission Date: 20201102
  Serious: Yes (Hospitalization)
  Sender: FDA-Public Use
  Company Number: JP-CELGENEUS-JPN-20191203295

PATIENT
  Age: 73 Year
  Sex: Male
  Weight: 55.7 kg

DRUGS (47)
  1. LIVALO [Concomitant]
     Active Substance: PITAVASTATIN CALCIUM
     Dosage: 2 MILLIGRAM
     Route: 048
     Dates: start: 20190112, end: 20190125
  2. METFORMIN HCL [Concomitant]
     Active Substance: METFORMIN HYDROCHLORIDE
     Indication: DIABETES MELLITUS
     Dosage: 1500 MILLIGRAM
     Route: 048
     Dates: start: 20181120, end: 20190104
  3. SITAGLIPTIN PHOSPHATE [Concomitant]
     Active Substance: SITAGLIPTIN PHOSPHATE
     Dosage: 50 MILLIGRAM
     Route: 048
     Dates: start: 20190112, end: 20190125
  4. COSOPT [Concomitant]
     Active Substance: DORZOLAMIDE HYDROCHLORIDE\TIMOLOL MALEATE
     Indication: GLAUCOMA
     Dosage: 1 DROPS
     Route: 047
     Dates: start: 2017
  5. MAGNESIUM OXIDE. [Concomitant]
     Active Substance: MAGNESIUM OXIDE
     Indication: CONSTIPATION
     Dosage: 990 MILLIGRAM
     Route: 048
     Dates: start: 20191028
  6. LIVALO [Concomitant]
     Active Substance: PITAVASTATIN CALCIUM
     Dosage: 2 MILLIGRAM
     Route: 048
     Dates: start: 20190317
  7. FEXOFENADINE HCL [Concomitant]
     Active Substance: FEXOFENADINE HYDROCHLORIDE
     Indication: RASH
     Dosage: 120 MILLIGRAM
     Route: 048
     Dates: start: 20190317, end: 20190904
  8. GRANISETRON [Concomitant]
     Active Substance: GRANISETRON
     Dosage: 2 MILLIGRAM
     Route: 058
     Dates: start: 20190207, end: 20190213
  9. TRAVOPROST. [Concomitant]
     Active Substance: TRAVOPROST
     Indication: GLAUCOMA
     Dosage: 1 DROPS
     Route: 047
     Dates: start: 2017
  10. VENETOCLAX. [Concomitant]
     Active Substance: VENETOCLAX
     Route: 048
     Dates: start: 20181110, end: 20181110
  11. FEXOFENADINE HCL [Concomitant]
     Active Substance: FEXOFENADINE HYDROCHLORIDE
     Indication: NASAL CONGESTION
     Dosage: 120 MILLIGRAM
     Route: 048
     Dates: start: 20181228, end: 20190302
  12. GRANISETRON [Concomitant]
     Active Substance: GRANISETRON
     Dosage: 2 MILLIGRAM
     Route: 048
     Dates: start: 20191121, end: 20191127
  13. LIVALO [Concomitant]
     Active Substance: PITAVASTATIN CALCIUM
     Dosage: 2 MILLIGRAM
     Route: 048
     Dates: start: 20190209, end: 20190302
  14. SENNOSIDE A+B CALCIUM [Concomitant]
     Active Substance: SENNOSIDES A AND B
     Indication: CONSTIPATION
     Dosage: 12 MILLIGRAM
     Route: 048
     Dates: start: 20190611
  15. ACETYLSALICYLIC ACID [Concomitant]
     Active Substance: ASPIRIN
     Indication: ANGINA PECTORIS
     Dosage: 100 MILLIGRAM
     Route: 048
     Dates: start: 2004
  16. BROTIZOLAM [Concomitant]
     Active Substance: BROTIZOLAM
     Indication: INSOMNIA
     Dosage: .25 MILLIGRAM
     Route: 048
     Dates: start: 2018
  17. LIVALO [Concomitant]
     Active Substance: PITAVASTATIN CALCIUM
     Indication: HYPERCHOLESTEROLAEMIA
     Dosage: 2 MILLIGRAM
     Route: 048
     Dates: start: 20181120, end: 20190104
  18. GRANISETRON [Concomitant]
     Active Substance: GRANISETRON
     Dosage: 2 MILLIGRAM
     Route: 048
     Dates: start: 20190312, end: 20190318
  19. GRANISETRON [Concomitant]
     Active Substance: GRANISETRON
     Dosage: 2 MILLIGRAM
     Route: 048
     Dates: start: 20190508, end: 20190514
  20. GRANISETRON [Concomitant]
     Active Substance: GRANISETRON
     Dosage: 2 MILLIGRAM
     Route: 048
     Dates: start: 20191024, end: 20191030
  21. HYALURONATE SODIUM [Concomitant]
     Active Substance: HYALURONATE SODIUM
     Indication: DRY EYE
     Dosage: 1 DROPS
     Route: 047
     Dates: start: 20190209, end: 20190531
  22. FEBUXOSTAT. [Concomitant]
     Active Substance: FEBUXOSTAT
     Indication: PROPHYLAXIS
     Dosage: 20 MILLIGRAM
     Route: 048
     Dates: start: 20181102, end: 20181112
  23. METFORMIN HCL [Concomitant]
     Active Substance: METFORMIN HYDROCHLORIDE
     Dosage: 1500 MILLIGRAM
     Route: 048
     Dates: start: 20190112, end: 20190125
  24. METFORMIN HCL [Concomitant]
     Active Substance: METFORMIN HYDROCHLORIDE
     Dosage: 1500 MILLIGRAM
     Route: 048
     Dates: start: 20190209, end: 20190302
  25. FEXOFENADINE HCL [Concomitant]
     Active Substance: FEXOFENADINE HYDROCHLORIDE
     Dosage: 450 MILLIGRAM
     Route: 048
     Dates: start: 20190905
  26. LIDOCAINE. [Concomitant]
     Active Substance: LIDOCAINE
     Indication: LOCAL ANAESTHESIA
     Dosage: 10 MILLILITER
     Route: 058
     Dates: start: 20181025
  27. GRANISETRON [Concomitant]
     Active Substance: GRANISETRON
     Dosage: 2 MILLIGRAM
     Route: 058
     Dates: start: 20181211, end: 20181216
  28. GRANISETRON [Concomitant]
     Active Substance: GRANISETRON
     Dosage: 2 MILLIGRAM
     Route: 048
     Dates: start: 20190605, end: 20190611
  29. GRANISETRON [Concomitant]
     Active Substance: GRANISETRON
     Dosage: 2 MILLIGRAM
     Route: 048
     Dates: start: 20190828, end: 20190903
  30. GRANISETRON [Concomitant]
     Active Substance: GRANISETRON
     Dosage: 2 MILLIGRAM
     Route: 048
     Dates: start: 20190926, end: 20191002
  31. ESOMEPRAZOLE MAGNESIUM. [Concomitant]
     Active Substance: ESOMEPRAZOLE MAGNESIUM
     Indication: GASTRIC ADENOMA
     Dosage: 20 MILLIGRAM
     Route: 048
     Dates: start: 2018
  32. VENETOCLAX. [Concomitant]
     Active Substance: VENETOCLAX
     Indication: ACUTE MYELOID LEUKAEMIA
     Route: 048
     Dates: start: 20181109, end: 20181109
  33. FEXOFENADINE HCL [Concomitant]
     Active Substance: FEXOFENADINE HYDROCHLORIDE
     Indication: SEASONAL ALLERGY
     Dosage: 120 MILLIGRAM
     Route: 048
     Dates: start: 20181112, end: 20181121
  34. UREA. [Concomitant]
     Active Substance: UREA
     Indication: DRY SKIN PROPHYLAXIS
     Dosage: .5 GRAM
     Route: 061
     Dates: start: 20181215
  35. GRANISETRON [Concomitant]
     Active Substance: GRANISETRON
     Indication: PROPHYLAXIS OF NAUSEA AND VOMITING
     Dosage: 2 MILLIGRAM
     Route: 048
     Dates: start: 20181109, end: 20181115
  36. GRANISETRON [Concomitant]
     Active Substance: GRANISETRON
     Dosage: 2 MILLIGRAM
     Route: 048
     Dates: start: 20190108, end: 20190114
  37. SITAGLIPTIN PHOSPHATE [Concomitant]
     Active Substance: SITAGLIPTIN PHOSPHATE
     Indication: DIABETES MELLITUS
     Dosage: 50 MILLIGRAM
     Route: 048
     Dates: start: 20181120, end: 20190104
  38. SITAGLIPTIN PHOSPHATE [Concomitant]
     Active Substance: SITAGLIPTIN PHOSPHATE
     Dosage: 50 MILLIGRAM
     Route: 048
     Dates: start: 20190209
  39. BORIC ACID [Concomitant]
     Active Substance: BORIC ACID
     Indication: DRY EYE
     Dosage: 1 DROPS
     Route: 047
     Dates: start: 20190601
  40. VENETOCLAX. [Concomitant]
     Active Substance: VENETOCLAX
     Route: 048
     Dates: start: 20181111
  41. METFORMIN HCL [Concomitant]
     Active Substance: METFORMIN HYDROCHLORIDE
     Dosage: 1500 MILLIGRAM
     Route: 048
     Dates: start: 20190317
  42. GRANISETRON [Concomitant]
     Active Substance: GRANISETRON
     Dosage: 2 MILLIGRAM
     Route: 048
     Dates: start: 20190409, end: 20190415
  43. GRANISETRON [Concomitant]
     Active Substance: GRANISETRON
     Dosage: 2 MILLIGRAM
     Route: 048
     Dates: start: 20190731, end: 20190806
  44. AZACITIDINE. [Suspect]
     Active Substance: AZACITIDINE
     Indication: ACUTE MYELOID LEUKAEMIA
     Dosage: 75 MILLIGRAM/SQ. METER
     Route: 058
     Dates: start: 20181109
  45. BIFIDOBACTERIUM NOS [Concomitant]
     Indication: DIARRHOEA
     Dosage: 1 TABLET
     Route: 048
     Dates: start: 20190108, end: 20190115
  46. BIFIDOBACTERIUM NOS [Concomitant]
     Dosage: 1 TABLET
     Route: 048
     Dates: start: 20190208
  47. BENZETHONIUM CHLORIDE [Concomitant]
     Active Substance: BENZETHONIUM CHLORIDE
     Indication: INFECTION PROPHYLAXIS
     Dosage: .5 MILLILITER
     Route: 061
     Dates: start: 20181115

REACTIONS (1)
  - Depressed level of consciousness [Recovered/Resolved]

NARRATIVE: CASE EVENT DATE: 20191129
